FAERS Safety Report 9435993 (Version 1)
Quarter: 2013Q3

REPORT INFORMATION
  Report Type: Spontaneous
  Country: FR (occurrence: FR)
  Receive Date: 20130801
  Receipt Date: 20130801
  Transmission Date: 20140515
  Serious: Yes (Hospitalization)
  Sender: FDA-Public Use
  Company Number: FR-B.I. PHARMACEUTICALS,INC./RIDGEFIELD-2013-FF-02032FF

PATIENT
  Sex: Male

DRUGS (4)
  1. PRADAXA [Suspect]
     Indication: ATRIAL FIBRILLATION
     Dosage: 300 MG
     Route: 048
     Dates: start: 2013, end: 201307
  2. PRADAXA [Suspect]
     Dosage: 300 MG
     Route: 048
     Dates: start: 201307, end: 20130725
  3. KARDEGIC [Concomitant]
     Route: 048
     Dates: start: 201307
  4. AMIODARONE [Concomitant]
     Dates: start: 2013

REACTIONS (2)
  - Aortic dissection [Recovered/Resolved]
  - Off label use [Recovered/Resolved]
